FAERS Safety Report 8530661-7 (Version None)
Quarter: 2012Q3

REPORT INFORMATION
  Report Type: 
  Country: None (occurrence: None)
  Receive Date: 20120723
  Receipt Date: 20120713
  Transmission Date: 20120928
  Serious: Yes (Life-Threatening, Other)
  Sender: FDA-Public Use
  Company Number: BR-ROCHE-1064489

PATIENT
  Sex: Female

DRUGS (6)
  1. AMITRIPTYLINE HCL [Concomitant]
  2. XOLAIR [Suspect]
     Indication: PRODUCT USED FOR UNKNOWN INDICATION
     Dosage: 2 AMPOULES
     Route: 058
     Dates: start: 20111111
  3. CYCLOBENZAPRINE HCL [Concomitant]
  4. ALENIA (BRAZIL) [Concomitant]
  5. BUDESONIDE [Concomitant]
  6. PHENERGAN [Concomitant]

REACTIONS (12)
  - FATIGUE [None]
  - INCORRECT ROUTE OF DRUG ADMINISTRATION [None]
  - DRUG INEFFECTIVE [None]
  - ASTHMATIC CRISIS [None]
  - NASOPHARYNGITIS [None]
  - DRUG ADMINISTERED IN WRONG DEVICE [None]
  - INFLUENZA [None]
  - DYSPHONIA [None]
  - DYSPNOEA [None]
  - COUGH [None]
  - HAEMORRHAGE [None]
  - HYPERSENSITIVITY [None]
